FAERS Safety Report 24706265 (Version 1)
Quarter: 2024Q4

REPORT INFORMATION
  Report Type: Spontaneous
  Country: CA (occurrence: CA)
  Receive Date: 20241206
  Receipt Date: 20241206
  Transmission Date: 20250115
  Serious: Yes (Hospitalization)
  Sender: CELLTRION
  Company Number: CA-PFIZER INC-202400307465

PATIENT

DRUGS (2)
  1. INFLECTRA [Suspect]
     Active Substance: INFLIXIMAB-DYYB
     Indication: Crohn^s disease
     Dosage: 565 MG, W 0, 2, 6 THEN EVERY 8 WEEKS
     Route: 042
     Dates: start: 20241113
  2. PREDNISONE [Concomitant]
     Active Substance: PREDNISONE
     Dosage: 40 MG, 1X/DAY, TAPERING DOWN WEEKLY TO 0 MG
     Dates: start: 2024

REACTIONS (1)
  - Condition aggravated [Unknown]
